FAERS Safety Report 8581415 (Version 2)
Quarter: 2012Q4

REPORT INFORMATION
  Report Type: 
  Country: US (occurrence: US)
  Receive Date: 20120525
  Receipt Date: 20121015
  Transmission Date: 20130627
  Serious: Yes (Hospitalization, Other)
  Sender: FDA-Public Use
  Company Number: US-TEVA-339611USA

PATIENT
  Age: 68 Year
  Sex: Female

DRUGS (1)
  1. TREANDA [Suspect]
     Indication: CHRONIC LYMPHOCYTIC LEUKAEMIA
     Dosage: unknown dose, discontinued after 5 cycles
     Route: 042

REACTIONS (2)
  - Haemolytic anaemia [Unknown]
  - Blood count abnormal [Unknown]
